FAERS Safety Report 20167148 (Version 1)
Quarter: 2021Q4

REPORT INFORMATION
  Report Type: Spontaneous
  Country: US (occurrence: None)
  Receive Date: 20211208
  Receipt Date: 20211208
  Transmission Date: 20220303
  Serious: Yes (Life-Threatening, Hospitalization)
  Sender: FDA-Public Use
  Company Number: None

PATIENT
  Age: 66 Year
  Sex: Female
  Weight: 95.5 kg

DRUGS (23)
  1. BARICITINIB [Suspect]
     Active Substance: BARICITINIB
     Indication: COVID-19
     Dosage: FREQUENCY : DAILY;?
     Route: 048
     Dates: start: 2021, end: 20211130
  2. BARICITINIB [Suspect]
     Active Substance: BARICITINIB
     Indication: COVID-19
     Dosage: FREQUENCY : DAILY;?
     Route: 048
     Dates: start: 20211201, end: 20211207
  3. CALCIUM CARBONATE [Concomitant]
     Active Substance: CALCIUM CARBONATE
     Dates: start: 2021, end: 20211204
  4. Chlorhexidine Topical [Concomitant]
     Dates: start: 2021
  5. DEXAMETHASONE [Concomitant]
     Active Substance: DEXAMETHASONE
     Dates: start: 20211126, end: 20211205
  6. ENOXAPARIN [Concomitant]
     Active Substance: ENOXAPARIN
     Dates: start: 20211126
  7. FAMOTIDINE [Concomitant]
     Active Substance: FAMOTIDINE
     Dates: start: 2021, end: 20211207
  8. FENTANYL [Concomitant]
     Active Substance: FENTANYL
     Dates: start: 2021
  9. DEXTROSE [Concomitant]
     Active Substance: DEXTROSE
     Dates: start: 2021, end: 20211208
  10. HEPARIN [Concomitant]
     Active Substance: HEPARIN SODIUM
     Dates: start: 2021, end: 20211205
  11. INSULIN NOS [Concomitant]
     Active Substance: INSULIN NOS
     Dates: start: 2021
  12. LORAZEPAM [Concomitant]
     Active Substance: LORAZEPAM
     Dates: start: 20211130, end: 20211205
  13. MELATONIN [Concomitant]
     Active Substance: MELATONIN
     Dates: start: 20211201, end: 20211201
  14. MIDAZOLAM [Concomitant]
     Active Substance: MIDAZOLAM
     Dates: start: 2021, end: 20211206
  15. ONDANSETRON [Concomitant]
     Active Substance: ONDANSETRON
     Dates: start: 20211129, end: 20211205
  16. PHENYLEPHRINE [Concomitant]
     Active Substance: PHENYLEPHRINE HYDROCHLORIDE
     Dates: start: 2021
  17. POTASSIUM CHLORIDE [Concomitant]
     Active Substance: POTASSIUM CHLORIDE
     Dates: start: 20211026, end: 20211126
  18. PROPOFOL [Concomitant]
     Active Substance: PROPOFOL
     Dates: start: 2021
  19. SODIUM BICARBONATE [Concomitant]
     Active Substance: SODIUM BICARBONATE
     Dates: start: 2021
  20. SUCCINYLCHOLINE [Concomitant]
     Active Substance: SUCCINYLCHOLINE
     Dates: start: 2021, end: 20211206
  21. VECURONIUM [Concomitant]
     Active Substance: VECURONIUM BROMIDE
     Dates: start: 2021, end: 20211206
  22. SODIUM POLYSTYRENE SULFONATE [Concomitant]
     Active Substance: SODIUM POLYSTYRENE SULFONATE
     Dates: start: 2021
  23. SENNA [Concomitant]
     Active Substance: SENNA LEAF\SENNOSIDES\SENNOSIDES A AND B
     Dates: start: 2021, end: 20211205

REACTIONS (2)
  - Pulmonary embolism [None]
  - Fibrin D dimer increased [None]

NARRATIVE: CASE EVENT DATE: 20211201
